FAERS Safety Report 16998231 (Version 2)
Quarter: 2020Q1

REPORT INFORMATION
  Report Type: Spontaneous
  Country: US (occurrence: US)
  Receive Date: 20191105
  Receipt Date: 20200206
  Transmission Date: 20200409
  Serious: No
  Sender: FDA-Public Use
  Company Number: US-RADIUS HEALTH INC.-2019US002958

PATIENT
  Age: 73 Year
  Sex: Female

DRUGS (1)
  1. TYMLOS [Suspect]
     Active Substance: ABALOPARATIDE
     Indication: OSTEOPOROSIS POSTMENOPAUSAL
     Dosage: 80 MCG/QD
     Route: 058
     Dates: start: 20190713

REACTIONS (6)
  - Inappropriate schedule of product administration [Recovered/Resolved]
  - Product dose omission [Unknown]
  - Insomnia [Unknown]
  - Back pain [Unknown]
  - Road traffic accident [Unknown]
  - Injection site mass [Recovering/Resolving]

NARRATIVE: CASE EVENT DATE: 20190819
